FAERS Safety Report 23629592 (Version 1)
Quarter: 2024Q1

REPORT INFORMATION
  Report Type: Spontaneous
  Country: FR (occurrence: FR)
  Receive Date: 20240314
  Receipt Date: 20240314
  Transmission Date: 20240410
  Serious: Yes (Hospitalization, Other)
  Sender: FDA-Public Use
  Company Number: FR-AFSSAPS-PB2024000209

PATIENT
  Age: 96 Year
  Sex: Female

DRUGS (5)
  1. AMOXICILLIN [Suspect]
     Active Substance: AMOXICILLIN
     Indication: Fasciitis
     Dosage: UNK
     Route: 042
     Dates: start: 20231015, end: 20231017
  2. CLAVULANIC ACID [Suspect]
     Active Substance: CLAVULANIC ACID
     Indication: Fasciitis
     Dosage: UNK
     Route: 042
     Dates: start: 20231015, end: 20231017
  3. CLINDAMYCIN [Suspect]
     Active Substance: CLINDAMYCIN
     Indication: Fasciitis
     Dosage: 600 MILLIGRAM, TWO TIMES A DAY
     Route: 042
     Dates: start: 20231020, end: 20231023
  4. PIPERACILLIN SODIUM [Suspect]
     Active Substance: PIPERACILLIN SODIUM
     Indication: Fasciitis
     Dosage: 4 GRAM, 3 TIMES A DAY
     Route: 042
     Dates: start: 20231020, end: 20231023
  5. TAZOBACTAM SODIUM [Suspect]
     Active Substance: TAZOBACTAM SODIUM
     Indication: Fasciitis
     Dosage: 4 GRAM, 3 TIMES A DAY
     Route: 042
     Dates: start: 20231020, end: 20231023

REACTIONS (1)
  - Clostridium difficile colitis [Unknown]

NARRATIVE: CASE EVENT DATE: 20231023
